FAERS Safety Report 4732632-5 (Version None)
Quarter: 2005Q3

REPORT INFORMATION
  Report Type: 
  Country: None (occurrence: None)
  Receive Date: 20050801
  Receipt Date: 20050718
  Transmission Date: 20060218
  Serious: Yes (Other)
  Sender: FDA-Public Use
  Company Number: 2005079849

PATIENT
  Age: 84 Year
  Sex: Female
  Weight: 45.3597 kg

DRUGS (10)
  1. DETROL LA [Suspect]
     Indication: HYPERTONIC BLADDER
     Dosage: 4 MG (4 MG, 1 IN 1 D), ORAL; 4 MG (4 MG, AS NECESSARY), ORAL
     Route: 048
     Dates: start: 19981221, end: 20050519
  2. DETROL LA [Suspect]
     Indication: HYPERTONIC BLADDER
     Dosage: 4 MG (4 MG, 1 IN 1 D), ORAL; 4 MG (4 MG, AS NECESSARY), ORAL
     Route: 048
     Dates: start: 20050519
  3. CELEBREX [Suspect]
     Indication: OSTEOARTHRITIS
     Dosage: 200 MG (200 MG, 1 IN 1 D), ORAL
     Route: 048
     Dates: start: 20050201
  4. ATENOLOL [Concomitant]
  5. ACETYLSALICYLIC ACID SRT [Concomitant]
  6. ACTONEL [Concomitant]
  7. ALTACE [Concomitant]
  8. MULTIVITAMIN [Concomitant]
  9. CALCIUM (CALCIUM) [Concomitant]
  10. PRILOSEC [Concomitant]

REACTIONS (21)
  - BLOOD CHOLESTEROL INCREASED [None]
  - CAROTID ARTERY STENOSIS [None]
  - CHEST DISCOMFORT [None]
  - CONSTIPATION [None]
  - COUGH [None]
  - DECREASED APPETITE [None]
  - DYSPNOEA [None]
  - FALL [None]
  - GASTROOESOPHAGEAL REFLUX DISEASE [None]
  - HAEMORRHOIDS [None]
  - MUSCULOSKELETAL DISCOMFORT [None]
  - OSTEOARTHRITIS [None]
  - PYREXIA [None]
  - RADIUS FRACTURE [None]
  - RASH ERYTHEMATOUS [None]
  - SNEEZING [None]
  - STRESS INCONTINENCE [None]
  - TEMPOROMANDIBULAR JOINT SYNDROME [None]
  - THROMBOCYTOPENIA [None]
  - URINARY INCONTINENCE [None]
  - WRIST FRACTURE [None]
